FAERS Safety Report 10595460 (Version 2)
Quarter: 2015Q1

REPORT INFORMATION
  Report Type: Spontaneous
  Country: US (occurrence: US)
  Receive Date: 20141120
  Receipt Date: 20150115
  Transmission Date: 20150720
  Serious: Yes (Other)
  Sender: FDA-Public Use
  Company Number: US-PFIZER INC-2014316513

PATIENT
  Age: 40 Year
  Sex: Female
  Weight: 68 kg

DRUGS (9)
  1. DILANTIN [Suspect]
     Active Substance: PHENYTOIN
     Indication: SEIZURE
     Dosage: 500 MG, DAILY (100 MG CAPSULES BY MOUTH EVERY NIGHT AT BEDTIME)
     Route: 048
  2. PHENYTOIN SODIUM. [Suspect]
     Active Substance: PHENYTOIN SODIUM
     Indication: SEIZURE
     Dosage: 460 MG, DAILY
     Route: 048
     Dates: start: 2013, end: 20141111
  3. VITAMIN C [Concomitant]
     Active Substance: ASCORBIC ACID
     Dosage: 2 DF, 1X/DAY
     Route: 048
  4. VITAMIN D [Concomitant]
     Active Substance: CHOLECALCIFEROL
     Dosage: 4000 IU, 1X/DAY
  5. DILANTIN [Suspect]
     Active Substance: PHENYTOIN
     Dosage: 400 MG, DAILY
     Route: 048
  6. PHENYTOIN SODIUM. [Suspect]
     Active Substance: PHENYTOIN SODIUM
     Indication: GENERALISED TONIC-CLONIC SEIZURE
     Dosage: 400 MG (FOUR 100MG CAPSULES) DAILY ALTERNATING WITH 500 MG (FIVE 100MG CAPSULES) DAILY
     Route: 048
     Dates: start: 201403, end: 20141113
  7. DILANTIN [Suspect]
     Active Substance: PHENYTOIN
     Indication: GENERALISED TONIC-CLONIC SEIZURE
     Dosage: 600 MG, DAILY (6 CAPSULES BY MOUTH EVERY NIGHT AT BEDTIME)
     Route: 048
  8. DILANTIN [Suspect]
     Active Substance: PHENYTOIN
     Dosage: UNK
     Route: 048
     Dates: start: 20141117
  9. DILANTIN [Suspect]
     Active Substance: PHENYTOIN
     Dosage: 60 MG, DAILY AS TWO 30MG CAPSULES
     Route: 048
     Dates: start: 2014

REACTIONS (9)
  - Weight decreased [Unknown]
  - Urinary incontinence [Unknown]
  - Head discomfort [Unknown]
  - Intentional product misuse [Unknown]
  - Stress [Unknown]
  - Sleep disorder [Unknown]
  - Neck pain [Unknown]
  - Toxicity to various agents [Unknown]
  - Drug ineffective [Unknown]

NARRATIVE: CASE EVENT DATE: 20140825
